FAERS Safety Report 13438450 (Version 1)
Quarter: 2017Q2

REPORT INFORMATION
  Report Type: Spontaneous
  Country: CH (occurrence: CH)
  Receive Date: 20170413
  Receipt Date: 20170413
  Transmission Date: 20170830
  Serious: Yes (Hospitalization)
  Sender: FDA-Public Use
  Company Number: CH-009507513-1704CHE004697

PATIENT
  Age: 80 Year
  Sex: Male
  Weight: 97.9 kg

DRUGS (10)
  1. ASPIRIN CARDIO [Suspect]
     Active Substance: ASPIRIN
     Dosage: TOOK TWO TABLETS
     Route: 048
     Dates: start: 20170318
  2. JARDIANCE MET [Suspect]
     Active Substance: EMPAGLIFLOZIN\METFORMIN HYDROCHLORIDE
     Dosage: 1 DF, QD (DOSAGE FORM = 1000MG/5MG TAB. 1/DIE, ACCORDING TO DAILY PLAN 0-0-1-0 CHRONIC TREATMENT)
     Route: 048
  3. CARVEDILOL. [Suspect]
     Active Substance: CARVEDILOL
     Dosage: 6.25 MG, UNK (DAILY DOSAGE PLAN: 2-0-1-0 CHRONIC TREATMENT)
     Route: 048
  4. ASPIRIN CARDIO [Suspect]
     Active Substance: ASPIRIN
     Dosage: ACCORDING TO DAILY PLAN: 1-0-0-0
     Route: 048
  5. COAPROVEL [Suspect]
     Active Substance: HYDROCHLOROTHIAZIDE\IRBESARTAN
     Dosage: 1 DF, DAILY PLAN 1-0-0-0, CHRONIC TREATMENT
     Route: 048
  6. DIAMICRON [Suspect]
     Active Substance: GLICLAZIDE
     Dosage: 90 MG, QD (DAILY DOSAGE PLAN: 1+1/2-0-0-0)
     Route: 048
  7. JANUMET [Suspect]
     Active Substance: METFORMIN HYDROCHLORIDE\SITAGLIPTIN PHOSPHATE
     Dosage: DOSAGE FORM = 1000MG/5MG TAB. 1/DIE, ACCORDING TO DAILY PLAN 0-0-1-0 CHRONIC TREATMENT
     Route: 048
  8. CARVEDILOL. [Suspect]
     Active Substance: CARVEDILOL
     Dosage: TOOK 5 TABLETS
     Route: 048
     Dates: start: 20170318
  9. ATORVASTATIN [Suspect]
     Active Substance: ATORVASTATIN
     Dosage: 40 MG, QD ACCORDING TO DAILY PLAN: 0-0-1-0 CHRONIC TREATMENT
     Route: 048
  10. APROVEL [Suspect]
     Active Substance: IRBESARTAN
     Dosage: ACCORDING TO DAILY PLAN 0-0-1-0 CHRONIC TREATMENT
     Route: 048

REACTIONS (1)
  - Drug administration error [Recovered/Resolved]

NARRATIVE: CASE EVENT DATE: 20170318
